FAERS Safety Report 7444718-5 (Version None)
Quarter: 2011Q2

REPORT INFORMATION
  Report Type: 
  Country: None (occurrence: None)
  Receive Date: 20110426
  Receipt Date: 20110426
  Transmission Date: 20111010
  Serious: Yes (Death)
  Sender: FDA-Public Use
  Company Number: None

PATIENT
  Age: 53 Year
  Sex: Male

DRUGS (3)
  1. LEVITRA [Concomitant]
  2. GABAPENTIN [Concomitant]
  3. REVLIMID [Suspect]
     Indication: MULTIPLE MYELOMA
     Dosage: 25MG DAILY ORALLY
     Route: 048
     Dates: start: 20100301, end: 20100701

REACTIONS (4)
  - DIZZINESS [None]
  - PULMONARY EMBOLISM [None]
  - STEM CELL TRANSPLANT [None]
  - MYOCARDIAL INFARCTION [None]
